FAERS Safety Report 7472133-7 (Version None)
Quarter: 2011Q2

REPORT INFORMATION
  Report Type: 
  Country: None (occurrence: None)
  Receive Date: 20110511
  Receipt Date: 20110117
  Transmission Date: 20111010
  Serious: No
  Sender: FDA-Public Use
  Company Number: A0907421A

PATIENT
  Sex: Female

DRUGS (2)
  1. TYKERB [Suspect]
     Dosage: 1000MG PER DAY
     Route: 048
     Dates: start: 20110114
  2. DIABETES MEDICATION [Suspect]
     Route: 048

REACTIONS (2)
  - DIARRHOEA [None]
  - NAUSEA [None]
